FAERS Safety Report 21992478 (Version 1)
Quarter: 2023Q1

REPORT INFORMATION
  Report Type: Spontaneous
  Country: IT (occurrence: IT)
  Receive Date: 20230215
  Receipt Date: 20230215
  Transmission Date: 20230418
  Serious: Yes (Hospitalization, Other)
  Sender: FDA-Public Use
  Company Number: IT-MINISAL02-908386

PATIENT
  Age: 91 Year
  Sex: Male

DRUGS (9)
  1. AMIODARONE [Suspect]
     Active Substance: AMIODARONE
     Indication: Hypertension
     Dosage: 1 DOSAGE FORM (DOSAGE: 1 UNIT OF MEASURE: DOSING UNIT FREQUENCY OF ADMINISTRATION: DAILY ROUTE OF AD
     Route: 048
  2. RIVAROXABAN [Suspect]
     Active Substance: RIVAROXABAN
     Indication: Thrombosis prophylaxis
     Dosage: 1 DOSAGE FORM, ONCE A DAY (DOSAGE: 1 UNIT OF MEASURE: DOSING UNIT FREQUENCY OF ADMINISTRATION: DAILY
     Route: 048
  3. ATROPINE SULFATE [Concomitant]
     Active Substance: ATROPINE SULFATE
     Indication: Glaucoma
     Dosage: 1 DOSAGE FORM ( DOSAGE: 1UNIT OF MEASURE: DOSING UNIT ROUTE OF ADMINISTRATION: OPHTHALMIC)
  4. AZARGA [Concomitant]
     Active Substance: BRINZOLAMIDE\TIMOLOL MALEATE
     Indication: Glaucoma
     Dosage: 1 DOSAGE FORM (DOSAGE: 1UNIT OF MEASURE: DOSING UNIT ROUTE OF ADMINISTRATION: OPHTHALMIC)
  5. ATORVASTATIN [Concomitant]
     Active Substance: ATORVASTATIN
     Indication: Hypercholesterolaemia
     Dosage: 10 MILLIGRAM (DOSAGE: 10UNIT OF MEASUREMENT: MILLIGRAMS ROUTE OF ADMINISTRATION: ORAL)
     Route: 048
  6. FUROSEMIDE [Concomitant]
     Active Substance: FUROSEMIDE
     Indication: Hypertension
     Dosage: 25 MILLIGRAM (DOSAGE: 25UNIT OF MEASUREMENT: MILLIGRAMS ROUTE OF ADMINISTRATION: ORAL)
     Route: 048
  7. LANTUS [Concomitant]
     Active Substance: INSULIN GLARGINE
     Indication: Type 2 diabetes mellitus
     Dosage: 1 DOSAGE FORM, ONCE A DAY ( DOSAGE: 1 UNIT OF MEASURE: DOSING UNIT ROUTE OF ADMINISTRATION: SUBCUTAN
     Route: 058
  8. LANSOPRAZOLE [Concomitant]
     Active Substance: LANSOPRAZOLE
     Indication: Dyspepsia
     Dosage: 15 MILLIGRAM ( DOSAGE: 15UNIT OF MEASUREMENT: MILLIGRAMS ROUTE OF ADMINISTRATION: ORAL)
     Route: 048
  9. RIFAXIMIN [Concomitant]
     Active Substance: RIFAXIMIN
     Indication: Product used for unknown indication
     Dosage: 200 MILLIGRAM (DOSAGE: 200UNIT OF MEASUREMENT: MILLIGRAMS)
     Route: 065

REACTIONS (3)
  - Anaemia [Recovering/Resolving]
  - Drug interaction [Unknown]
  - Rectal haemorrhage [Recovering/Resolving]

NARRATIVE: CASE EVENT DATE: 20220711
